FAERS Safety Report 26026290 (Version 1)
Quarter: 2025Q4

REPORT INFORMATION
  Report Type: Spontaneous
  Country: US (occurrence: US)
  Receive Date: 20251111
  Receipt Date: 20251111
  Transmission Date: 20260118
  Serious: No
  Sender: SANOFI AVENTIS
  Company Number: US-SA-2025SA333961

PATIENT
  Sex: Female

DRUGS (3)
  1. FABRAZYME [Suspect]
     Active Substance: AGALSIDASE BETA
     Indication: Fabry^s disease
     Dosage: 50 MG, QOW
     Route: 042
     Dates: start: 202412
  2. STERILE WATER [Concomitant]
     Active Substance: WATER
     Dosage: UNK
  3. SODIUM CHLORIDE [Concomitant]
     Active Substance: SODIUM CHLORIDE
     Dosage: UNK

REACTIONS (6)
  - COVID-19 [Unknown]
  - Cough [Unknown]
  - Pyrexia [Unknown]
  - Hypertension [Unknown]
  - Heart rate increased [Unknown]
  - Oxygen saturation decreased [Unknown]
